FAERS Safety Report 8904579 (Version 5)
Quarter: 2014Q3

REPORT INFORMATION
  Report Type: Spontaneous
  Country: US (occurrence: US)
  Receive Date: 20121112
  Receipt Date: 20140826
  Transmission Date: 20150326
  Serious: No
  Sender: FDA-Public Use
  Company Number: US-009507513-1211USA003024

PATIENT
  Sex: Male
  Weight: 77.98 kg

DRUGS (1)
  1. PROPECIA [Suspect]
     Active Substance: FINASTERIDE
     Indication: ANDROGENETIC ALOPECIA
     Dosage: 1 MG, UNK
     Route: 048
     Dates: start: 20050703, end: 20110208

REACTIONS (13)
  - Bacterial infection [Unknown]
  - Organic erectile dysfunction [Unknown]
  - Sexual dysfunction [Not Recovered/Not Resolved]
  - Depression [Unknown]
  - Cognitive disorder [Not Recovered/Not Resolved]
  - Micturition urgency [Unknown]
  - Sexual dysfunction [Not Recovered/Not Resolved]
  - Erectile dysfunction [Recovering/Resolving]
  - Dysuria [Unknown]
  - Genital burning sensation [Unknown]
  - Anxiety [Unknown]
  - Painful ejaculation [Unknown]
  - Insomnia [Unknown]

NARRATIVE: CASE EVENT DATE: 20050824
